FAERS Safety Report 7731773-8 (Version None)
Quarter: 2011Q3

REPORT INFORMATION
  Report Type: 
  Country: None (occurrence: None)
  Receive Date: 20110906
  Receipt Date: 20110902
  Transmission Date: 20111222
  Serious: Yes (Other)
  Sender: FDA-Public Use
  Company Number: PHEH2008US08722

PATIENT
  Sex: Female

DRUGS (11)
  1. PRAVASTATIN [Concomitant]
  2. OMEPRAZOLE [Concomitant]
  3. XELODA [Concomitant]
  4. MELOXICAM [Concomitant]
  5. AREDIA [Suspect]
  6. MORPHINE [Concomitant]
  7. ZOMETA [Suspect]
  8. PENICILLIN [Concomitant]
  9. TAXOL [Concomitant]
  10. FOSAMAX [Concomitant]
  11. COUMADIN [Concomitant]

REACTIONS (21)
  - PAIN [None]
  - NEOPLASM PROGRESSION [None]
  - RENAL FAILURE CHRONIC [None]
  - HYDRONEPHROSIS [None]
  - OSTEOPENIA [None]
  - CARPAL TUNNEL SYNDROME [None]
  - ANHEDONIA [None]
  - WOUND INFECTION [None]
  - METASTASES TO BONE [None]
  - SPINAL OSTEOARTHRITIS [None]
  - ANXIETY [None]
  - SKIN EXFOLIATION [None]
  - METASTASES TO LIVER [None]
  - VULVITIS [None]
  - OSTEONECROSIS OF JAW [None]
  - DISABILITY [None]
  - DEFORMITY [None]
  - ABSCESS NECK [None]
  - SYNOVIAL CYST [None]
  - CERVICAL SPINAL STENOSIS [None]
  - HEPATIC MASS [None]
